FAERS Safety Report 19426585 (Version 6)
Quarter: 2022Q3

REPORT INFORMATION
  Report Type: Spontaneous
  Country: US (occurrence: US)
  Receive Date: 20210616
  Receipt Date: 20220901
  Transmission Date: 20221026
  Serious: Yes (Other)
  Sender: FDA-Public Use
  Company Number: US-009507513-2106USA003446

PATIENT
  Age: 67 Year
  Sex: Male

DRUGS (1)
  1. KEYTRUDA [Suspect]
     Active Substance: PEMBROLIZUMAB
     Indication: Non-small cell lung cancer stage IV
     Dosage: UNK, EVERY 3 WEEKS
     Dates: start: 201908

REACTIONS (7)
  - Tumour haemorrhage [Recovering/Resolving]
  - Coronary artery occlusion [Unknown]
  - Cardiac valve disease [Not Recovered/Not Resolved]
  - Cancer surgery [Unknown]
  - Blood loss anaemia [Recovered/Resolved]
  - Iron deficiency anaemia [Recovered/Resolved]
  - Fatigue [Unknown]

NARRATIVE: CASE EVENT DATE: 20220113
